FAERS Safety Report 8100932-7 (Version None)
Quarter: 2012Q1

REPORT INFORMATION
  Report Type: 
  Country: None (occurrence: None)
  Receive Date: 20120129
  Receipt Date: 20110920
  Transmission Date: 20120608
  Serious: No
  Sender: FDA-Public Use
  Company Number: US-ABBOTT-11P-163-0856348-00

PATIENT
  Age: 57 Year
  Sex: Female

DRUGS (8)
  1. DIOVAN [Concomitant]
     Indication: BLOOD PRESSURE
     Route: 048
  2. ZOLOFT [Concomitant]
     Indication: DEPRESSION
     Route: 048
  3. SYNTHROID [Concomitant]
     Indication: HYPOTHYROIDISM
     Route: 048
  4. SIMVASTATIN [Concomitant]
     Indication: BLOOD CHOLESTEROL
     Route: 048
  5. HUMIRA [Suspect]
     Indication: PSORIASIS
  6. WELLBUTRIN [Concomitant]
     Indication: DEPRESSION
     Route: 048
  7. TRIAMTERENE [Concomitant]
     Indication: MENIERE'S DISEASE
     Dosage: 75/50MG: TAKES ONE BY MOUTH EVERY DAY
     Route: 048
  8. AMBIEN [Concomitant]
     Indication: INSOMNIA
     Dosage: TAKES ONE BY MOUTH AT  NIGHT FOR SLEEP
     Route: 048

REACTIONS (1)
  - PSORIASIS [None]
